FAERS Safety Report 4846259-8 (Version None)
Quarter: 2005Q4

REPORT INFORMATION
  Report Type: 
  Country: None (occurrence: None)
  Receive Date: 20051115
  Receipt Date: 20050829
  Transmission Date: 20060501
  Serious: Yes (Other)
  Sender: FDA-Public Use
  Company Number: 416018

PATIENT
  Age: 51 Year
  Sex: Male
  Weight: 71.2 kg

DRUGS (2)
  1. PEGASYS [Suspect]
     Indication: HEPATITIS C
     Dosage: 180 MCG  1 PER WEEK  SUBCUTANEOUS
     Route: 058
     Dates: start: 20030319, end: 20050615
  2. RIBAVIRIN [Suspect]
     Indication: HEPATITIS C
     Dosage: 1200 MG DAILY  ORAL
     Route: 048
     Dates: start: 20030319, end: 20030615

REACTIONS (5)
  - ALANINE AMINOTRANSFERASE INCREASED [None]
  - PANCREATITIS [None]
  - PHOTOPHOBIA [None]
  - RASH [None]
  - WEIGHT DECREASED [None]
